FAERS Safety Report 6332324-5 (Version None)
Quarter: 2009Q3

REPORT INFORMATION
  Report Type: 
  Country: None (occurrence: None)
  Receive Date: 20090827
  Receipt Date: 20090827
  Transmission Date: 20100115
  Serious: Yes (Other)
  Sender: FDA-Public Use
  Company Number: None

PATIENT
  Sex: Male

DRUGS (1)
  1. TOPAMAX [Suspect]
     Indication: AFFECTIVE DISORDER
     Dates: start: 20070321

REACTIONS (2)
  - AGITATION [None]
  - PRODUCT SUBSTITUTION ISSUE [None]
